FAERS Safety Report 25156315 (Version 1)
Quarter: 2025Q2

REPORT INFORMATION
  Report Type: Spontaneous
  Country: US (occurrence: US)
  Receive Date: 20250403
  Receipt Date: 20250403
  Transmission Date: 20250717
  Serious: Yes (Other)
  Sender: TARO
  Company Number: US-TARO PHARMACEUTICALS USA INC.-2025TAR01426

PATIENT

DRUGS (1)
  1. LIDOCAINE [Suspect]
     Active Substance: LIDOCAINE
     Indication: Microneedling
     Route: 061

REACTIONS (2)
  - Stress cardiomyopathy [Unknown]
  - Overdose [Unknown]
